FAERS Safety Report 17362541 (Version 2)
Quarter: 2020Q1

REPORT INFORMATION
  Report Type: Report from Study
  Country: None (occurrence: US)
  Receive Date: 20200203
  Receipt Date: 20200221
  Transmission Date: 20200409
  Serious: Yes (Other)
  Sender: FDA-Public Use
  Company Number: US-ABBVIE-20P-163-3235602-00

PATIENT
  Sex: Male

DRUGS (3)
  1. IMBRUVICA [Suspect]
     Active Substance: IBRUTINIB
     Indication: WALDENSTROM^S MACROGLOBULINAEMIA
     Route: 048
     Dates: start: 20191028
  2. IMBRUVICA [Suspect]
     Active Substance: IBRUTINIB
     Dosage: ORAL
     Route: 048
     Dates: start: 20191030
  3. IMBRUVICA [Suspect]
     Active Substance: IBRUTINIB
     Dosage: ORAL
     Route: 048
     Dates: start: 20191030

REACTIONS (3)
  - Diarrhoea [Unknown]
  - Pancreatic cyst [Unknown]
  - Constipation [Unknown]
